FAERS Safety Report 8811085 (Version 2)
Quarter: 2013Q2

REPORT INFORMATION
  Report Type: Spontaneous
  Country: US (occurrence: None)
  Receive Date: 20120924
  Receipt Date: 20130401
  Transmission Date: 20140414
  Serious: Yes (Death)
  Sender: FDA-Public Use
  Company Number: 2012US-004371

PATIENT
  Age: 41 Year
  Sex: Male
  Weight: 104.5 kg

DRUGS (25)
  1. OMONTYS [Suspect]
     Indication: NEPHROGENIC ANAEMIA
     Dosage: 10 MG, Q 4 WEEKS, INTRAVENOUS
     Route: 042
     Dates: start: 20120901, end: 20120901
  2. HEPARIN [Concomitant]
  3. COREG (CARVEDILOL) [Concomitant]
  4. ASPIRIN [Concomitant]
  5. BISACODYL [Concomitant]
  6. LIISINOPRIL [Concomitant]
  7. ERGOCALCIFEROL [Concomitant]
  8. MIRALAX [Concomitant]
  9. LEVEMIR (INSULIN DETEMIR) [Concomitant]
  10. GABAPENTIN (GABAPENTIN) [Concomitant]
  11. EFFIENT [Concomitant]
  12. CELEXA [Concomitant]
  13. FLONASE (FLUTICASONE PROPIONATE) [Concomitant]
  14. PRILOSEC [Concomitant]
  15. LIPITOR (ATORVASTATIN CALCIUM) [Concomitant]
  16. TYLENOL (ACETAMINOPHEN) [Concomitant]
  17. CATAPRESS PATCH (CLONIDINE) [Concomitant]
  18. OMEGA 3 (FISH OIL) [Concomitant]
  19. NOVOLOG [Concomitant]
  20. NEPHROCAPS [Concomitant]
  21. NORVASC (AMLODIPINE BESILATE) [Concomitant]
  22. PHOSLO [Concomitant]
  23. ZEMPLAR (PARICALCITOL) [Concomitant]
  24. VENOFER [Concomitant]
  25. LIQUACEL [Concomitant]

REACTIONS (16)
  - Cardiac arrest [None]
  - Respiratory arrest [None]
  - Ventricular fibrillation [None]
  - Unresponsive to stimuli [None]
  - Blood pressure decreased [None]
  - Malaise [None]
  - Headache [None]
  - Blood pressure increased [None]
  - Pulseless electrical activity [None]
  - Vomiting [None]
  - Nervous system disorder [None]
  - Aneurysm [None]
  - Cerebrovascular accident [None]
  - Bradycardia [None]
  - Agonal rhythm [None]
  - Sudden death [None]
